FAERS Safety Report 9322124 (Version 2)
Quarter: 2013Q2

REPORT INFORMATION
  Report Type: Spontaneous
  Country: ES (occurrence: ES)
  Receive Date: 20130531
  Receipt Date: 20130605
  Transmission Date: 20140414
  Serious: Yes (Hospitalization, Other)
  Sender: FDA-Public Use
  Company Number: ES-UCBSA-086913

PATIENT
  Age: 36 Year
  Sex: Female

DRUGS (3)
  1. LEVETIRACETAM [Suspect]
     Indication: EPILEPSY
  2. OXCARBAZEPINE [Suspect]
     Indication: EPILEPSY
  3. VENLAFAXINE [Concomitant]
     Indication: DEPRESSION

REACTIONS (2)
  - Encephalopathy [Recovered/Resolved]
  - Encephalitis [Recovered/Resolved]
